FAERS Safety Report 5142029-4 (Version None)
Quarter: 2006Q4

REPORT INFORMATION
  Report Type: 
  Country: None (occurrence: None)
  Receive Date: 20061102
  Receipt Date: 20060928
  Transmission Date: 20070319
  Serious: Yes (Other)
  Sender: FDA-Public Use
  Company Number: PHEH2006US12325

PATIENT
  Age: 77 Year
  Sex: Male

DRUGS (4)
  1. ZOMETA [Suspect]
     Indication: OSTEOPOROSIS
     Dosage: 4 ML EVERY 3 MONTHS
     Dates: start: 20060503, end: 20060524
  2. ATENOLOL [Concomitant]
  3. COUMADIN [Concomitant]
     Indication: DEEP VEIN THROMBOSIS
  4. FOSAMAX [Concomitant]

REACTIONS (8)
  - BACTERIAL INFECTION [None]
  - BONE DEBRIDEMENT [None]
  - BONE DISORDER [None]
  - ERYTHEMA [None]
  - GINGIVAL SWELLING [None]
  - GINGIVITIS [None]
  - OSTEONECROSIS [None]
  - PAIN [None]
